FAERS Safety Report 6546470-4 (Version None)
Quarter: 2010Q1

REPORT INFORMATION
  Report Type: 
  Country: None (occurrence: None)
  Receive Date: 20100122
  Receipt Date: 20100118
  Transmission Date: 20100710
  Serious: Yes (Death, Hospitalization)
  Sender: FDA-Public Use
  Company Number: PHHY2009IN48035

PATIENT
  Age: 26 Year
  Sex: Male

DRUGS (1)
  1. ASUNRA [Suspect]
     Indication: THALASSAEMIA
     Dosage: 20 MG/KG, UNK

REACTIONS (2)
  - DIARRHOEA [None]
  - IRON OVERLOAD [None]
